FAERS Safety Report 24429908 (Version 3)
Quarter: 2025Q1

REPORT INFORMATION
  Report Type: Spontaneous
  Country: IT (occurrence: IT)
  Receive Date: 20241012
  Receipt Date: 20250127
  Transmission Date: 20250409
  Serious: Yes (Life-Threatening, Hospitalization, Other)
  Sender: TAKEDA
  Company Number: None

PATIENT
  Age: 91 Year
  Sex: Female

DRUGS (17)
  1. LANSOPRAZOLE [Interacting]
     Active Substance: LANSOPRAZOLE
     Indication: Product used for unknown indication
     Dosage: 30 MILLIGRAM, QD
  2. LEVOFLOXACIN [Interacting]
     Active Substance: LEVOFLOXACIN
     Indication: Bacterial infection
     Dosage: 500 MILLIGRAM, BID
  3. BUPRENORPHINE HYDROCHLORIDE [Interacting]
     Active Substance: BUPRENORPHINE HYDROCHLORIDE
     Indication: Pain
  4. BUPRENORPHINE HYDROCHLORIDE [Interacting]
     Active Substance: BUPRENORPHINE HYDROCHLORIDE
     Dosage: 35 MILLIGRAM, QD
  5. TRAMADOL HYDROCHLORIDE [Interacting]
     Active Substance: TRAMADOL HYDROCHLORIDE
     Indication: Pain
  6. GLYBURIDE\METFORMIN [Interacting]
     Active Substance: GLYBURIDE\METFORMIN
     Indication: Type 2 diabetes mellitus
     Dosage: 3 DOSAGE FORM, QD
  7. GLYBURIDE\METFORMIN [Interacting]
     Active Substance: GLYBURIDE\METFORMIN
     Dosage: 1200 MILLIGRAM, QD
  8. NADROPARIN [Interacting]
     Active Substance: NADROPARIN
     Indication: Anticoagulant therapy
     Dosage: UNK, QD
  9. NADROPARIN [Interacting]
     Active Substance: NADROPARIN
     Indication: Ischaemic stroke
  10. NADROPARIN [Interacting]
     Active Substance: NADROPARIN
     Dosage: 3.8 INTERNATIONAL UNIT, QD
  11. NADROPARIN [Interacting]
     Active Substance: NADROPARIN
  12. ENALAPRIL MALEATE [Interacting]
     Active Substance: ENALAPRIL MALEATE
     Indication: Hypertension
     Dosage: 20 MILLIGRAM, QD
  13. ENALAPRIL\HYDROCHLOROTHIAZIDE [Interacting]
     Active Substance: ENALAPRIL\HYDROCHLOROTHIAZIDE
     Indication: Hypertension
     Dosage: 20 MILLIGRAM, QD
  14. GLYBURIDE [Suspect]
     Active Substance: GLYBURIDE
     Indication: Type 2 diabetes mellitus
     Dosage: 7.5 MILLIGRAM, QD
  15. ASPIRIN [Concomitant]
     Active Substance: ASPIRIN
     Indication: Anticoagulant therapy
     Dosage: 100 MILLIGRAM, QD
  16. INSULIN NOS [Concomitant]
     Active Substance: INSULIN NOS
     Indication: Product used for unknown indication
  17. HEPARIN [Concomitant]
     Active Substance: HEPARIN SODIUM
     Indication: Middle cerebral artery stroke

REACTIONS (9)
  - Hypoglycaemia [Recovered/Resolved]
  - Drug interaction [Recovered/Resolved]
  - Hypoglycaemic coma [Recovered/Resolved]
  - Skin warm [Recovered/Resolved]
  - Localised infection [Unknown]
  - Hyperhidrosis [Recovered/Resolved]
  - Peripheral artery thrombosis [Unknown]
  - Feeling hot [Recovered/Resolved]
  - Coma [Recovered/Resolved]
